FAERS Safety Report 6380949-3 (Version None)
Quarter: 2009Q3

REPORT INFORMATION
  Report Type: 
  Country: None (occurrence: None)
  Receive Date: 20090929
  Receipt Date: 20090925
  Transmission Date: 20100115
  Serious: Yes (Life-Threatening, Hospitalization)
  Sender: FDA-Public Use
  Company Number: JP-TYCO HEALTHCARE/MALLINCKRODT-T200901723

PATIENT
  Age: 73 Year
  Sex: Female

DRUGS (5)
  1. OPTIRAY 350 [Suspect]
     Indication: COMPUTERISED TOMOGRAM ABDOMEN
     Dosage: 93 ML, SINGLE
     Route: 042
     Dates: start: 20090916, end: 20090916
  2. TEMOCAPRIL HYDROCHLORIDE [Concomitant]
     Dosage: 2 MG, QD
     Route: 048
     Dates: start: 20090120
  3. NITRENDIPINE [Concomitant]
     Dosage: 5 MG, QD
     Route: 048
     Dates: start: 20010327
  4. FAMOTIDINE [Concomitant]
     Dosage: 20 MG, BID
     Route: 048
     Dates: start: 20010327
  5. DIASTASE [Concomitant]
     Dosage: 1.3 G, TID
     Route: 048
     Dates: start: 20010327

REACTIONS (3)
  - ANAPHYLACTIC SHOCK [None]
  - DEPRESSED LEVEL OF CONSCIOUSNESS [None]
  - NAUSEA [None]
